FAERS Safety Report 7978635-9 (Version None)
Quarter: 2011Q4

REPORT INFORMATION
  Report Type: 
  Country: None (occurrence: None)
  Receive Date: 20111202
  Receipt Date: 20111122
  Transmission Date: 20120403
  Serious: Yes (Hospitalization)
  Sender: FDA-Public Use
  Company Number: 2010SP064581

PATIENT
  Age: 50 Year
  Sex: Female

DRUGS (9)
  1. TAMOXIFEN [Concomitant]
  2. ABT-888 (INVESTIGATIONAL DRUG) [Suspect]
     Indication: OVARIAN CANCER
     Dosage: 40 MG;BID;PO
     Route: 048
     Dates: start: 20101028, end: 20101103
  3. ATORVASTATIN CALCIUM [Concomitant]
  4. TAXOL W/CARBOPLATIN [Concomitant]
  5. RAMIPRIL [Concomitant]
  6. CARDILOC 5 [Concomitant]
  7. ESCITALOPRAM OXALATE [Concomitant]
  8. TRANEXAMIC ACID [Concomitant]
  9. TEMOZOLOMIDE [Suspect]
     Indication: OVARIAN CANCER
     Dosage: PO
     Route: 048
     Dates: start: 20101028, end: 20101101

REACTIONS (1)
  - FEBRILE NEUTROPENIA [None]
